FAERS Safety Report 9166529 (Version 2)
Quarter: 2013Q2

REPORT INFORMATION
  Report Type: Spontaneous
  Country: FR (occurrence: FR)
  Receive Date: 20130315
  Receipt Date: 20130405
  Transmission Date: 20140414
  Serious: Yes (Hospitalization)
  Sender: FDA-Public Use
  Company Number: FR-PFIZER INC-2013082880

PATIENT
  Age: 32 Year
  Sex: Female

DRUGS (1)
  1. ADEPAL [Suspect]
     Indication: CONTRACEPTION
     Dosage: 20-30UG/ 150-200UG
     Route: 048
     Dates: start: 1994, end: 20080721

REACTIONS (3)
  - Ischaemic stroke [Recovered/Resolved]
  - Hemiplegia [Recovered/Resolved]
  - Dysarthria [Recovered/Resolved]
